FAERS Safety Report 8756839 (Version 3)
Quarter: 2013Q1

REPORT INFORMATION
  Report Type: Spontaneous
  Country: US (occurrence: US)
  Receive Date: 20120828
  Receipt Date: 20130115
  Transmission Date: 20140127
  Serious: Yes (Hospitalization)
  Sender: FDA-Public Use
  Company Number: US-BAYER-2012-087747

PATIENT
  Age: 19 Year
  Sex: Female
  Weight: 58.96 kg

DRUGS (7)
  1. YASMIN [Suspect]
     Indication: PREMENSTRUAL SYNDROME
     Dosage: UNK
     Dates: start: 200510, end: 200602
  2. KLARON [Concomitant]
     Dosage: 10 MG, DIALY
     Dates: start: 2006
  3. ALLEGRA [Concomitant]
     Dosage: 180 MG, DIALY
     Route: 048
  4. PAXIL [Concomitant]
     Dosage: 10 MG, DAILY
     Route: 048
  5. IBUPROFEN [Concomitant]
     Dosage: UNK UNK, PRN
  6. ALEVE [Concomitant]
     Dosage: UNK UNK, PRN
  7. ADVIL [Concomitant]
     Dosage: UNK UNK, PRN

REACTIONS (9)
  - Deep vein thrombosis [None]
  - Pain [None]
  - Mobility decreased [None]
  - Injury [None]
  - Emotional distress [None]
  - Anhedonia [None]
  - General physical health deterioration [None]
  - Anxiety [None]
  - Pain [None]
